FAERS Safety Report 14677061 (Version 1)
Quarter: 2018Q1

REPORT INFORMATION
  Report Type: Spontaneous
  Country: US (occurrence: US)
  Receive Date: 20180323
  Receipt Date: 20180323
  Transmission Date: 20180509
  Serious: Yes (Death)
  Sender: FDA-Public Use
  Company Number: None

PATIENT
  Age: 77 Year
  Sex: Male

DRUGS (12)
  1. AMLODIPINE [Concomitant]
     Active Substance: AMLODIPINE BESYLATE
  2. LISINOPRIL. [Concomitant]
     Active Substance: LISINOPRIL
  3. SODIUM BICAR [Concomitant]
  4. LOSARTAN POT [Concomitant]
     Active Substance: LOSARTAN POTASSIUM
  5. SERTRALINE [Concomitant]
     Active Substance: SERTRALINE HYDROCHLORIDE
  6. AMIODARONE [Concomitant]
     Active Substance: AMIODARONE
  7. LONSURF [Suspect]
     Active Substance: TIPIRACIL HYDROCHLORIDE\TRIFLURIDINE
     Indication: COLON CANCER
     Dosage: 60 MG BID 5 DAYS A WEEK PO
     Route: 048
     Dates: start: 20171210
  8. FUROSEMIDE. [Concomitant]
     Active Substance: FUROSEMIDE
  9. SPS SUS [Concomitant]
  10. CEPHALEXIN. [Concomitant]
     Active Substance: CEPHALEXIN
  11. ONDANSETRON [Concomitant]
     Active Substance: ONDANSETRON
  12. ONETOUCH TES ULTRA BL [Concomitant]

REACTIONS (1)
  - Death [None]

NARRATIVE: CASE EVENT DATE: 20180311
